FAERS Safety Report 14151958 (Version 2)
Quarter: 2021Q1

REPORT INFORMATION
  Report Type: Spontaneous
  Country: SE (occurrence: US)
  Receive Date: 20171102
  Receipt Date: 20210106
  Transmission Date: 20210419
  Serious: Yes (Hospitalization, Other)
  Sender: FDA-Public Use
  Company Number: US-ASTELLAS-2017US043669

PATIENT
  Age: 55 Year
  Sex: Male

DRUGS (9)
  1. BENZTROPINE [BENZATROPINE] [Interacting]
     Active Substance: BENZTROPINE
     Indication: PSYCHOTHERAPY
     Dosage: UNK, UNKNOWN FREQ.
     Route: 065
  2. HYDROXYZINE [Interacting]
     Active Substance: HYDROXYZINE HYDROCHLORIDE
     Indication: PSYCHOTHERAPY
     Dosage: UNK, UNKNOWN FREQ.
     Route: 065
  3. PHENYTOIN. [Interacting]
     Active Substance: PHENYTOIN
     Indication: TOXICITY TO VARIOUS AGENTS
     Route: 065
  4. QUETIAPINE. [Interacting]
     Active Substance: QUETIAPINE
     Indication: PSYCHOTHERAPY
     Dosage: UNK UNK, UNKNOWN FREQ.
     Route: 048
  5. TACROLIMUS. [Suspect]
     Active Substance: TACROLIMUS
     Indication: RENAL TRANSPLANT
     Dosage: UNK, UNKNOWN FREQ.
     Route: 065
  6. HALOPERIDOL. [Interacting]
     Active Substance: HALOPERIDOL
     Indication: PSYCHOTHERAPY
     Dosage: UNK UNK, UNKNOWN FREQ.
     Route: 065
  7. CITALOPRAM [Interacting]
     Active Substance: CITALOPRAM HYDROBROMIDE
     Indication: PSYCHOTHERAPY
     Dosage: UNK, UNKNOWN FREQ.
     Route: 065
  8. TACROLIMUS. [Interacting]
     Active Substance: TACROLIMUS
     Route: 065
  9. FLUOXETINE [Interacting]
     Active Substance: FLUOXETINE HYDROCHLORIDE
     Indication: PSYCHOTHERAPY
     Dosage: UNK, UNKNOWN FREQ.
     Route: 065

REACTIONS (6)
  - Drug interaction [Unknown]
  - Toxicity to various agents [Recovered/Resolved]
  - Acute kidney injury [Recovered/Resolved]
  - Immunosuppressant drug level increased [Recovered/Resolved]
  - Tremor [Recovered/Resolved]
  - Drug interaction [Recovered/Resolved]
